FAERS Safety Report 4264634-X (Version None)
Quarter: 2004Q1

REPORT INFORMATION
  Report Type: 
  Country: None (occurrence: None)
  Receive Date: 20040102
  Receipt Date: 20031223
  Transmission Date: 20041129
  Serious: No
  Sender: FDA-Public Use
  Company Number: 03P-229-0245698-00

PATIENT
  Age: 57 Year
  Sex: Female

DRUGS (3)
  1. BIAXIN [Suspect]
     Indication: BACTERIAL INFECTION
     Dosage: 1 GM, 1 IN 1 D, PER ORAL
     Route: 048
  2. LANSOPRAZOLE [Suspect]
     Dosage: 30 MG, 1 IN 1 D, PER ORAL
     Route: 048
     Dates: start: 20031128, end: 20031211
  3. AMOXIL [Concomitant]

REACTIONS (2)
  - DERMATITIS BULLOUS [None]
  - OEDEMA MOUTH [None]
